FAERS Safety Report 17044105 (Version 1)
Quarter: 2019Q4

REPORT INFORMATION
  Report Type: Report from Study
  Country: JP (occurrence: JP)
  Receive Date: 20191118
  Receipt Date: 20191118
  Transmission Date: 20200122
  Serious: Yes (Other)
  Sender: FDA-Public Use
  Company Number: JP-BRISTOL-MYERS SQUIBB COMPANY-BMS-2019-094588

PATIENT
  Age: 62 Year
  Sex: Male
  Weight: 53 kg

DRUGS (2)
  1. NIVOLUMAB [Suspect]
     Active Substance: NIVOLUMAB
     Indication: GASTRIC CANCER
     Dosage: UNK, Q2WK
     Route: 041
     Dates: start: 201710
  2. NIVOLUMAB [Suspect]
     Active Substance: NIVOLUMAB
     Indication: PRODUCT USED FOR UNKNOWN INDICATION
     Dosage: UNK, Q2WK
     Route: 041
     Dates: start: 201810

REACTIONS (7)
  - Neuropathy peripheral [Not Recovered/Not Resolved]
  - Productive cough [Unknown]
  - Eczema [Recovering/Resolving]
  - Nocturia [Unknown]
  - Oral pain [Recovering/Resolving]
  - Lip oedema [Recovering/Resolving]
  - Lip pain [Recovering/Resolving]

NARRATIVE: CASE EVENT DATE: 201811
